FAERS Safety Report 5362051-2 (Version None)
Quarter: 2007Q2

REPORT INFORMATION
  Report Type: 
  Country: None (occurrence: None)
  Receive Date: 20070619
  Receipt Date: 20070608
  Transmission Date: 20071010
  Serious: Yes (Other)
  Sender: FDA-Public Use
  Company Number: GB-AMGEN-US229176

PATIENT

DRUGS (1)
  1. ENBREL [Suspect]
     Dosage: UNKNOWN
     Route: 058

REACTIONS (1)
  - MUSCULAR WEAKNESS [None]
